FAERS Safety Report 4305288-3 (Version None)
Quarter: 2004Q1

REPORT INFORMATION
  Report Type: 
  Country: None (occurrence: None)
  Receive Date: 20040226
  Receipt Date: 20030221
  Transmission Date: 20041129
  Serious: No
  Sender: FDA-Public Use
  Company Number: US-BRISTOL-MYERS SQUIBB COMPANY-12192308

PATIENT
  Age: 60 Year
  Sex: Female
  Weight: 78 kg

DRUGS (8)
  1. TAXOL [Suspect]
     Indication: OVARIAN CANCER
     Dosage: DOSE = 175 MG/M^2  3RD CYCLE SCHEDULED 21FEB03
     Route: 042
  2. CARBOPLATIN [Concomitant]
  3. ANZEMET [Concomitant]
     Indication: PREMEDICATION
  4. ZANTAC [Concomitant]
     Indication: PREMEDICATION
  5. BENADRYL [Concomitant]
     Indication: PREMEDICATION
  6. ATIVAN [Concomitant]
     Indication: PREMEDICATION
  7. NORMAL SALINE WITH 20 POTASSIUM CHLORIDE [Concomitant]
     Indication: PREMEDICATION
  8. MAGNESIUM [Concomitant]
     Indication: PREMEDICATION

REACTIONS (2)
  - ALOPECIA [None]
  - PAIN OF SKIN [None]
